FAERS Safety Report 9527595 (Version 1)
Quarter: 2013Q1

REPORT INFORMATION
  Report Type: Spontaneous
  Country: US (occurrence: None)
  Receive Date: 20130315
  Receipt Date: 20130315
  Transmission Date: 20140127
  Serious: Yes (Other)
  Sender: FDA-Public Use
  Company Number: US-JNJFOC-20120304286

PATIENT
  Sex: Female
  Weight: 77.1 kg

DRUGS (2)
  1. MOTRIN [Suspect]
     Indication: ARTHRITIS
  2. METHOTREXATE ( METHOTREXATE) [Concomitant]

REACTIONS (1)
  - Gastric ulcer [None]
